FAERS Safety Report 7187194-2 (Version None)
Quarter: 2010Q4

REPORT INFORMATION
  Report Type: 
  Country: None (occurrence: None)
  Receive Date: 20101222
  Receipt Date: 20101217
  Transmission Date: 20110411
  Serious: Yes (Hospitalization, Other)
  Sender: FDA-Public Use
  Company Number: US-AMGEN-USASP2010001208

PATIENT

DRUGS (16)
  1. NPLATE [Suspect]
     Indication: IDIOPATHIC THROMBOCYTOPENIC PURPURA
     Dosage: UNK UNK, QWK
     Route: 058
     Dates: start: 20081210
  2. CORTICOSTEROIDS [Concomitant]
     Dosage: UNK
  3. IMMUNOGLOBULINS [Concomitant]
     Dosage: UNK
     Dates: start: 20030613
  4. LASIX [Concomitant]
     Dosage: 80 MG, BID
  5. LIPITOR [Concomitant]
     Dosage: 40 MG, QD
  6. MULTIVITAMIN                       /00097801/ [Concomitant]
     Dosage: UNK UNK, QD
  7. NEXIUM [Concomitant]
     Dosage: 40 MG, QD
  8. RANOLAZINE [Concomitant]
     Dosage: 1000 MG, BID
  9. ASPIRIN [Concomitant]
     Dosage: 325 MG, QD
  10. COREG [Concomitant]
     Dosage: 12.5 MG, BID
  11. DIOVAN [Concomitant]
     Dosage: 180 MG, QD
  12. GLUCOPHAGE [Concomitant]
     Dosage: 1000 MG, BID
  13. GLUCOTROL XL [Concomitant]
     Dosage: 10 MG, QD
  14. POTASSIUM                          /00031402/ [Concomitant]
     Dosage: 20 MEQ, BID
  15. LANOXIN [Concomitant]
     Dosage: 0.125 MG, QD
  16. ACTOS [Concomitant]

REACTIONS (19)
  - ACUTE MYOCARDIAL INFARCTION [None]
  - ANAEMIA [None]
  - BONE MARROW RETICULIN FIBROSIS [None]
  - CARDIAC FAILURE CONGESTIVE [None]
  - CEREBROVASCULAR ACCIDENT [None]
  - CORONARY ARTERY DISEASE [None]
  - DIABETES MELLITUS [None]
  - DYSPNOEA [None]
  - FLATULENCE [None]
  - HYPERLIPIDAEMIA [None]
  - HYPERTENSION [None]
  - INSOMNIA [None]
  - ISCHAEMIC CARDIOMYOPATHY [None]
  - PLATELET COUNT DECREASED [None]
  - PLATELET COUNT INCREASED [None]
  - PLATELET DISORDER [None]
  - PROSTATE CANCER [None]
  - RENAL FAILURE [None]
  - TRANSIENT ISCHAEMIC ATTACK [None]
